FAERS Safety Report 8283671-1 (Version None)
Quarter: 2012Q2

REPORT INFORMATION
  Report Type: 
  Country: None (occurrence: None)
  Receive Date: 20120413
  Receipt Date: 20120405
  Transmission Date: 20120825
  Serious: Yes (Hospitalization)
  Sender: FDA-Public Use
  Company Number: PHHO2011US018598

PATIENT
  Sex: Female
  Weight: 65.4 kg

DRUGS (30)
  1. ISORDIL [Concomitant]
     Dosage: 40 MG, TID
     Route: 048
  2. TIMOLOL MALEATE [Concomitant]
     Indication: GLAUCOMA
     Dosage: 1 DF, Q12H
  3. TORSEMIDE [Concomitant]
     Dosage: 40 MG, BID
  4. NITROSTAT [Concomitant]
     Dosage: 0.4 MG, Q5M PRN
     Route: 060
  5. VENTOLIN [Concomitant]
     Dosage: 2 DF, QID (2 INHALATION INH QID PRN)
  6. COLACE [Concomitant]
     Dosage: 100 MG, BID
     Route: 048
  7. ALDACTONE [Concomitant]
     Indication: CARDIAC FAILURE CHRONIC
     Dosage: 12.5 MG, QD
     Route: 048
     Dates: start: 20060115
  8. ZYLOPRIM [Concomitant]
     Dosage: 100 MG, QD
     Route: 048
  9. FUROSEMIDE [Suspect]
     Dosage: 40 MG, QD
     Route: 048
  10. ASPIRIN [Concomitant]
     Dosage: 81 MG, QD
     Route: 048
  11. GABAPENTIN [Concomitant]
     Dosage: 600 MG, Q12H
     Route: 048
  12. METOLAZONE [Concomitant]
     Dosage: 25 MG, QD
     Route: 048
  13. MECLIZINE HYDROCHLORIDE [Concomitant]
     Dosage: 25 MG, QD
     Route: 048
  14. SPIRONOLACTONE [Concomitant]
     Indication: CARDIAC FAILURE CHRONIC
     Dosage: 12.5 MG, DAILY
     Dates: start: 20060115
  15. ISOSORBIDE DINITRATE [Concomitant]
     Indication: CARDIAC FAILURE CHRONIC
     Dosage: 40 MG, TID
     Route: 048
     Dates: start: 20060115
  16. ZETIA [Concomitant]
     Dosage: 10 MG, QHS
     Route: 048
  17. REGLAN [Concomitant]
     Dosage: 5 MG, QD
     Route: 048
  18. TOPROL-XL [Concomitant]
     Dosage: 25 MG, QD
     Route: 048
  19. BLINDED ALISKIREN [Suspect]
     Indication: CARDIAC FAILURE ACUTE
     Dosage: CODE NOT BROKEN
     Route: 048
     Dates: start: 20111029, end: 20111102
  20. BLINDED NO TREATMENT RECEIVED [Suspect]
     Indication: CARDIAC FAILURE ACUTE
     Dosage: CODE NOT BROKEN
     Route: 048
     Dates: start: 20111029, end: 20111102
  21. FEOSOL [Concomitant]
     Dosage: 324 MG, BID
     Route: 048
  22. APRESOLINE [Concomitant]
     Dosage: 25 MG, Q8H
     Route: 048
  23. LIPITOR [Concomitant]
     Dosage: 80 MG, QHS
     Route: 048
  24. BRIMONIDINE TARTRATE [Concomitant]
     Indication: GLAUCOMA
     Dosage: 1 DF, Q12H
  25. WARFARIN SODIUM [Concomitant]
     Indication: ATRIAL FIBRILLATION
     Dosage: 5 MG, DAILY
     Dates: start: 19940115, end: 20111101
  26. WARFARIN SODIUM [Concomitant]
     Dosage: 7.5 MG, QSSMT
     Route: 048
  27. ATORVASTATIN [Concomitant]
     Indication: HYPERLIPIDAEMIA
     Dosage: 40 MG, D (DAILY)
     Dates: start: 20060115
  28. METOPROLOL SUCCINATE [Concomitant]
     Indication: CARDIAC FAILURE CHRONIC
     Dosage: 25 MG, D (DAILY)
     Route: 048
     Dates: start: 20060115, end: 20111101
  29. ASPIRIN [Concomitant]
     Indication: CORONARY ARTERY DISEASE
     Dosage: 81 MG D (DAILY)
     Route: 048
     Dates: start: 19990115
  30. PLACEBO [Suspect]
     Indication: CARDIAC FAILURE ACUTE
     Dosage: CODE NOT BROKEN
     Route: 048
     Dates: start: 20111029, end: 20111102

REACTIONS (2)
  - RENAL IMPAIRMENT [None]
  - DISEASE PROGRESSION [None]
